FAERS Safety Report 11189789 (Version 5)
Quarter: 2017Q3

REPORT INFORMATION
  Report Type: Spontaneous
  Country: US (occurrence: US)
  Receive Date: 20150615
  Receipt Date: 20170707
  Transmission Date: 20171127
  Serious: Yes (Hospitalization, Other)
  Sender: FDA-Public Use
  Company Number: US-JNJFOC-20150608230

PATIENT
  Age: 84 Year
  Sex: Male

DRUGS (21)
  1. ALPHA LIPOIC ACID [Concomitant]
     Active Substance: .ALPHA.-LIPOIC ACID
  2. THIAMINE. [Concomitant]
     Active Substance: THIAMINE
  3. FUROSEMIDE. [Concomitant]
     Active Substance: FUROSEMIDE
     Route: 048
  4. GLIMEPIRIDE. [Concomitant]
     Active Substance: GLIMEPIRIDE
  5. VITAMIN C [Concomitant]
     Active Substance: ASCORBIC ACID
  6. CYANOCOBALAMIN. [Concomitant]
     Active Substance: CYANOCOBALAMIN
  7. LEVOTHYROXINE. [Concomitant]
     Active Substance: LEVOTHYROXINE
     Route: 048
  8. MIRALAX [Concomitant]
     Active Substance: POLYETHYLENE GLYCOL 3350
  9. DOCUSATE SODIUM. [Concomitant]
     Active Substance: DOCUSATE SODIUM
  10. CARBAMAZEPINE. [Concomitant]
     Active Substance: CARBAMAZEPINE
  11. VALACICLOVIR [Concomitant]
     Active Substance: VALACYCLOVIR HYDROCHLORIDE
  12. IMBRUVICA [Suspect]
     Active Substance: IBRUTINIB
     Indication: CHRONIC LYMPHOCYTIC LEUKAEMIA
     Route: 048
     Dates: start: 2017, end: 20170622
  13. POLYCARBOPHIL CALCIUM [Concomitant]
     Active Substance: CALCIUM POLYCARBOPHIL
  14. MAGNESIUM [Concomitant]
     Active Substance: MAGNESIUM
  15. IMBRUVICA [Suspect]
     Active Substance: IBRUTINIB
     Indication: CHRONIC LYMPHOCYTIC LEUKAEMIA
     Route: 048
     Dates: start: 20150415, end: 2017
  16. VITAMIN D3 [Concomitant]
     Active Substance: CHOLECALCIFEROL
  17. MULTIVITAMINS [Concomitant]
     Active Substance: VITAMINS
  18. TURMERIC [Concomitant]
     Active Substance: HERBALS\TURMERIC
  19. LYSINE [Concomitant]
     Active Substance: LYSINE
  20. ALLOPURINOL. [Concomitant]
     Active Substance: ALLOPURINOL
     Dosage: 0.5 DF, QD
     Route: 048
  21. TAMSULOSIN [Concomitant]
     Active Substance: TAMSULOSIN
     Route: 048

REACTIONS (15)
  - Fall [Unknown]
  - Concussion [Unknown]
  - Cough [Not Recovered/Not Resolved]
  - Asthenia [Unknown]
  - Oedema peripheral [Not Recovered/Not Resolved]
  - Pyrexia [Recovered/Resolved]
  - White blood cell count decreased [Unknown]
  - Malignant pleural effusion [Recovering/Resolving]
  - Flatulence [Unknown]
  - Malaise [Unknown]
  - Pruritus [Not Recovered/Not Resolved]
  - Haemoglobin decreased [Recovering/Resolving]
  - Cerebrovascular accident [Unknown]
  - Eructation [Unknown]
  - Pain [Unknown]

NARRATIVE: CASE EVENT DATE: 2015
